FAERS Safety Report 8799069 (Version 1)
Quarter: 2012Q4

REPORT INFORMATION
  Report Type: 
  Country: US (occurrence: US)
  Receive Date: 20120920
  Receipt Date: 20120920
  Transmission Date: 20130627
  Serious: No
  Sender: FDA-Public Use
  Company Number: US-ASTRAZENECA-2011SE58731

PATIENT
  Sex: Male

DRUGS (1)
  1. ZESTRIL [Suspect]
     Route: 048

REACTIONS (1)
  - Dementia [Unknown]
